FAERS Safety Report 5351074-5 (Version None)
Quarter: 2007Q2

REPORT INFORMATION
  Report Type: 
  Country: None (occurrence: None)
  Receive Date: 20070608
  Receipt Date: 20070531
  Transmission Date: 20071010
  Serious: Yes (Hospitalization)
  Sender: FDA-Public Use
  Company Number: US-PFIZER INC-2007005726

PATIENT
  Sex: Male
  Weight: 58.1 kg

DRUGS (14)
  1. SUTENT [Suspect]
     Indication: PROSTATE CANCER
     Route: 048
     Dates: start: 20061206, end: 20070102
  2. SUTENT [Suspect]
     Route: 048
     Dates: start: 20070118, end: 20070122
  3. DOCETAXEL [Suspect]
     Indication: PROSTATE CANCER
     Route: 042
     Dates: start: 20070118, end: 20070118
  4. PREDNISONE TAB [Suspect]
     Indication: PROSTATE CANCER
     Route: 048
     Dates: start: 20070118, end: 20070122
  5. HYDROCODONE BITARTRATE [Concomitant]
     Route: 048
  6. DURAGESIC-100 [Concomitant]
     Route: 062
     Dates: start: 20060224
  7. TAMSULOSIN HCL [Concomitant]
     Route: 048
     Dates: start: 20060110
  8. AMBIEN [Concomitant]
     Route: 048
     Dates: start: 20060412
  9. ZOLOFT [Concomitant]
     Route: 048
     Dates: start: 20060525
  10. MORPHINE [Concomitant]
     Route: 042
     Dates: start: 20070118, end: 20070118
  11. PROMETHAZINE [Concomitant]
     Route: 042
     Dates: start: 20070118, end: 20070118
  12. FENTANYL [Concomitant]
     Route: 042
     Dates: start: 20070118, end: 20070118
  13. DEMEROL [Concomitant]
     Route: 042
     Dates: start: 20070118, end: 20070118
  14. TORADOL [Concomitant]
     Route: 030
     Dates: start: 20070118, end: 20070118

REACTIONS (1)
  - MYOCARDIAL INFARCTION [None]
